FAERS Safety Report 16962780 (Version 1)
Quarter: 2019Q4

REPORT INFORMATION
  Report Type: Report from Study
  Country: US (occurrence: US)
  Receive Date: 20191025
  Receipt Date: 20191025
  Transmission Date: 20200122
  Serious: Yes (Hospitalization)
  Sender: FDA-Public Use
  Company Number: US-ACTELION-A-NJ2017-148829

PATIENT
  Age: 38 Year
  Sex: Female
  Weight: 68.03 kg

DRUGS (8)
  1. VELETRI [Suspect]
     Active Substance: EPOPROSTENOL
     Dosage: UNK
     Route: 042
     Dates: start: 20151130
  2. ADCIRCA [Concomitant]
     Active Substance: TADALAFIL
  3. VELETRI [Suspect]
     Active Substance: EPOPROSTENOL
     Dosage: 9 NG/KG/MIN
     Route: 042
  4. COUMADIN [Concomitant]
     Active Substance: WARFARIN SODIUM
  5. LANTUS [Concomitant]
     Active Substance: INSULIN GLARGINE
  6. MULTIVITAMIN [Concomitant]
     Active Substance: VITAMINS
  7. VELETRI [Suspect]
     Active Substance: EPOPROSTENOL
     Indication: PULMONARY ARTERIAL HYPERTENSION
     Dosage: 50 NG/KG, PER MIN
     Route: 042
  8. LEVOTHYROXINE. [Concomitant]
     Active Substance: LEVOTHYROXINE

REACTIONS (19)
  - Catheterisation cardiac [Unknown]
  - Device related infection [Recovered/Resolved]
  - Sepsis [Recovered/Resolved]
  - Leukopenia [Recovered/Resolved]
  - Catheter management [Recovered/Resolved]
  - Pain in jaw [Not Recovered/Not Resolved]
  - Diarrhoea [Not Recovered/Not Resolved]
  - Skin infection [Recovered/Resolved]
  - Flushing [Unknown]
  - Nausea [Unknown]
  - Serratia test positive [Recovered/Resolved]
  - Catheter site erythema [Recovered/Resolved]
  - Catheter culture positive [Recovered/Resolved]
  - Nasopharyngitis [Unknown]
  - Catheter site pain [Recovered/Resolved]
  - Dyspnoea exertional [Not Recovered/Not Resolved]
  - Catheter site infection [Recovered/Resolved]
  - Headache [Unknown]
  - Arthralgia [Not Recovered/Not Resolved]

NARRATIVE: CASE EVENT DATE: 201701
